FAERS Safety Report 8180649-3 (Version None)
Quarter: 2012Q1

REPORT INFORMATION
  Report Type: 
  Country: None (occurrence: None)
  Receive Date: 20120302
  Receipt Date: 20120223
  Transmission Date: 20120608
  Serious: Yes (Other)
  Sender: FDA-Public Use
  Company Number: DE-ROCHE-1033167

PATIENT
  Age: 54 Year
  Sex: Male
  Weight: 67 kg

DRUGS (7)
  1. DIGITOXIN TAB [Concomitant]
     Indication: TACHYARRHYTHMIA
     Route: 048
  2. MABTHERA [Suspect]
     Indication: WEGENER'S GRANULOMATOSIS
     Route: 042
     Dates: start: 20080301
  3. PREDNISOLONE [Concomitant]
     Indication: WEGENER'S GRANULOMATOSIS
     Route: 048
  4. ASPIRIN [Concomitant]
     Indication: TACHYARRHYTHMIA
     Route: 048
  5. VERAPAMIL [Concomitant]
     Indication: HYPERTENSION
     Route: 048
  6. ADALIMUMAB [Concomitant]
     Indication: WEGENER'S GRANULOMATOSIS
     Route: 058
     Dates: start: 20101001
  7. FUROSEMIDE [Concomitant]
     Indication: CAPILLARY LEAK SYNDROME
     Route: 048

REACTIONS (1)
  - HEPATITIS [None]
